FAERS Safety Report 6535070-8 (Version None)
Quarter: 2010Q1

REPORT INFORMATION
  Report Type: 
  Country: None (occurrence: None)
  Receive Date: 20100112
  Receipt Date: 20091231
  Transmission Date: 20100710
  Serious: Yes (Hospitalization, Other)
  Sender: FDA-Public Use
  Company Number: US-MYLANLABS-2009S1020766

PATIENT
  Age: 68 Year
  Sex: Female
  Weight: 58.97 kg

DRUGS (6)
  1. HYDROXYCHLOROQUINE SULFATE [Suspect]
     Indication: SYSTEMIC LUPUS ERYTHEMATOSUS
     Route: 048
     Dates: start: 20050101, end: 20090201
  2. HYDROXYCHLOROQUINE SULFATE [Suspect]
     Route: 048
     Dates: start: 20050101, end: 20090201
  3. HYDROXYCHLOROQUINE SULFATE [Suspect]
     Route: 048
     Dates: start: 20090801
  4. HYDROXYCHLOROQUINE SULFATE [Suspect]
     Route: 048
     Dates: start: 20090801
  5. VITAMINS [Concomitant]
  6. VITAMIN D [Concomitant]

REACTIONS (3)
  - FALL [None]
  - HEADACHE [None]
  - RETINAL TEAR [None]
